FAERS Safety Report 8532976-5 (Version None)
Quarter: 2012Q3

REPORT INFORMATION
  Report Type: 
  Country: None (occurrence: None)
  Receive Date: 20120724
  Receipt Date: 20120717
  Transmission Date: 20120928
  Serious: Yes (Hospitalization)
  Sender: FDA-Public Use
  Company Number: US-JNJFOC-20120708274

PATIENT
  Sex: Female
  Weight: 89.36 kg

DRUGS (7)
  1. NUCYNTA [Suspect]
     Indication: PAIN
     Route: 048
  2. LOVASTATIN [Concomitant]
     Indication: BLOOD CHOLESTEROL
     Dosage: ONCE A DAY
     Route: 048
  3. NUCYNTA [Suspect]
     Dosage: EVERY 6 HOURS
     Route: 048
     Dates: start: 20110601
  4. LISINOPRIL [Concomitant]
     Indication: PROTEIN URINE PRESENT
     Dosage: ONCE A DAY
     Route: 048
  5. METFORMIN HYDROCHLORIDE [Concomitant]
     Indication: DIABETES MELLITUS
     Dosage: TWICE A DAY
     Route: 048
  6. DILAUDID [Suspect]
     Indication: PAIN
     Dosage: AS NEEDED
     Route: 048
     Dates: start: 20111001, end: 20120101
  7. TOPROL-XL [Concomitant]
     Indication: ISCHAEMIC HEART DISEASE PROPHYLAXIS
     Dosage: ONCE A DAY
     Route: 048

REACTIONS (2)
  - TENDON DISORDER [None]
  - DRUG EFFECT DECREASED [None]
